FAERS Safety Report 6744952-3 (Version None)
Quarter: 2010Q2

REPORT INFORMATION
  Report Type: 
  Country: None (occurrence: None)
  Receive Date: 20100527
  Receipt Date: 20100517
  Transmission Date: 20101027
  Serious: Yes (Other)
  Sender: FDA-Public Use
  Company Number: CA-ABBOTT-10P-028-0645831-00

PATIENT
  Sex: Female

DRUGS (4)
  1. HUMIRA [Suspect]
     Indication: CROHN'S DISEASE
     Dosage: 160 MG LOADING DOSE
     Route: 058
     Dates: start: 20100415, end: 20100415
  2. HUMIRA [Suspect]
     Dosage: 80 MG LOADING DOSE
     Route: 058
  3. HUMIRA [Suspect]
     Route: 058
  4. ANTIBIOTICS [Concomitant]
     Indication: DRUG USE FOR UNKNOWN INDICATION

REACTIONS (3)
  - ABNORMAL FAECES [None]
  - FAECAL VOLUME INCREASED [None]
  - GRAND MAL CONVULSION [None]
